FAERS Safety Report 15335692 (Version 2)
Quarter: 2018Q3

REPORT INFORMATION
  Report Type: Spontaneous
  Country: IT (occurrence: IT)
  Receive Date: 20180830
  Receipt Date: 20180913
  Transmission Date: 20181010
  Serious: Yes (Death, Other)
  Sender: FDA-Public Use
  Company Number: IT-ABBVIE-18S-083-2470464-00

PATIENT
  Age: 48 Year
  Sex: Female

DRUGS (2)
  1. VENETOCLAX. [Suspect]
     Active Substance: VENETOCLAX
     Indication: ACUTE MYELOID LEUKAEMIA
     Route: 048
  2. AZACITIDINE. [Concomitant]
     Active Substance: AZACITIDINE
     Indication: ACUTE MYELOID LEUKAEMIA

REACTIONS (14)
  - Klebsiella sepsis [Unknown]
  - Off label use [Recovered/Resolved]
  - Aplasia [Fatal]
  - Stem cell transplant [Unknown]
  - Nervous system disorder [Unknown]
  - Pancreatitis [Unknown]
  - Hyperthermia [Unknown]
  - Multiple organ dysfunction syndrome [Fatal]
  - Cerebral microhaemorrhage [Unknown]
  - Complications of transplant surgery [Fatal]
  - Drug effect incomplete [Unknown]
  - Bronchitis [Unknown]
  - Pneumonia klebsiella [Unknown]
  - Pathogen resistance [Unknown]

NARRATIVE: CASE EVENT DATE: 201808
